FAERS Safety Report 8194594-0 (Version None)
Quarter: 2012Q1

REPORT INFORMATION
  Report Type: 
  Country: None (occurrence: None)
  Receive Date: 20120308
  Receipt Date: 20110912
  Transmission Date: 20120608
  Serious: No
  Sender: FDA-Public Use
  Company Number: US-GLAXOSMITHKLINE-A0944270A

PATIENT
  Age: 50 Year
  Sex: Female

DRUGS (2)
  1. DIURETIC [Concomitant]
  2. NICORETTE [Suspect]
     Indication: EX-TOBACCO USER

REACTIONS (3)
  - DRUG ADMINISTRATION ERROR [None]
  - NICOTINE DEPENDENCE [None]
  - INTENTIONAL DRUG MISUSE [None]
